FAERS Safety Report 7436817-9 (Version None)
Quarter: 2011Q2

REPORT INFORMATION
  Report Type: 
  Country: None (occurrence: None)
  Receive Date: 20110426
  Receipt Date: 20100128
  Transmission Date: 20111010
  Serious: No
  Sender: FDA-Public Use
  Company Number: US-BAYER-201012860NA

PATIENT
  Sex: Female

DRUGS (1)
  1. YAZ [Suspect]
     Route: 048
     Dates: start: 20080101, end: 20100101

REACTIONS (5)
  - ANGER [None]
  - DEPRESSED MOOD [None]
  - DRUG WITHDRAWAL HEADACHE [None]
  - TEARFULNESS [None]
  - ACNE [None]
